FAERS Safety Report 6631878-9 (Version None)
Quarter: 2010Q1

REPORT INFORMATION
  Report Type: 
  Country: None (occurrence: None)
  Receive Date: 20100310
  Receipt Date: 20100301
  Transmission Date: 20100710
  Serious: Yes (Hospitalization)
  Sender: FDA-Public Use
  Company Number: OPER20100029

PATIENT
  Age: 44 Year
  Sex: Male
  Weight: 136.0791 kg

DRUGS (8)
  1. OPANA [Suspect]
     Indication: PAIN
     Dosage: 3 TABLETS, BID, ORAL
     Route: 048
     Dates: start: 20090701
  2. LEVOTHYROXINE (LEVOTHYROXINE) (UNKNOWN) (LEVOTHYROXINE) [Concomitant]
  3. FUROSEMIDE (FUROSEMIDE) (UNKNOWN) (FUROSEMIDE) [Concomitant]
  4. AMLODIPINE (AMLODIPINE) (UNKNOWN) (AMLODIPINE) [Concomitant]
  5. DIAZEPAM (DIAZEPAM) (UNKNOWN) (DIAZEPAM) [Concomitant]
  6. CYMBALTA (DULOXETINE HYDROCHLORIDE) (UNKNOWN) (DULOXETINE HYDROCHLORID [Concomitant]
  7. OXYCODONE (OXYCODONE) (UNKNOWN) (OXYCODONE) [Concomitant]
  8. TEMAZEPAM (TEMAZEPAM) (UNKNOWN) (TEMAZEPAM) [Concomitant]

REACTIONS (2)
  - SWELLING [None]
  - WEIGHT INCREASED [None]
